FAERS Safety Report 9220614 (Version 2)
Quarter: 2013Q2

REPORT INFORMATION
  Report Type: Spontaneous
  Country: NL (occurrence: NL)
  Receive Date: 20130409
  Receipt Date: 20130422
  Transmission Date: 20140414
  Serious: Yes (Death, Other)
  Sender: FDA-Public Use
  Company Number: NL-ALEXION-A201300299

PATIENT
  Age: 82 Year
  Sex: Male

DRUGS (13)
  1. SOLIRIS 300MG [Suspect]
     Indication: PAROXYSMAL NOCTURNAL HAEMOGLOBINURIA
     Dosage: 600 MG, QW
     Route: 042
     Dates: start: 20090804, end: 20090825
  2. SOLIRIS 300MG [Suspect]
     Dosage: 900 MG, Q2W
     Route: 042
     Dates: start: 20090901
  3. FUROSEMIDE W/SPIRONOLACTONE [Concomitant]
     Indication: CARDIAC FAILURE
     Dosage: 120MG AND 75MG GRADUALLY INCREASED
     Route: 048
     Dates: start: 2009
  4. METOPROLOL SUCCINATE [Concomitant]
     Indication: CARDIAC FAILURE
     Dosage: 50 MG, QD GRADUALLY INCREASED
     Route: 048
     Dates: start: 2009
  5. METOPROPITARTRATE [Concomitant]
     Indication: CARDIAC FAILURE
     Dosage: 100 MG, QD GRADUALLY INCREASED
     Route: 048
     Dates: start: 2009
  6. VALSARTAN [Concomitant]
     Indication: CARDIAC FAILURE
     Dosage: 80 MG, QD
     Route: 048
     Dates: start: 201203
  7. DESURIC [Concomitant]
     Indication: CARDIAC FAILURE
     Dosage: 100 MG, QD
     Route: 048
     Dates: start: 201110
  8. COLCHICINA [Concomitant]
     Indication: CARDIAC FAILURE
     Dosage: 0.5 MG, QD
     Route: 048
     Dates: start: 201110
  9. DEFEROXAMINE [Concomitant]
     Indication: CARDIAC FAILURE
     Dosage: 2 G, QD 5 NIGHTS/W
     Route: 058
     Dates: start: 201207
  10. DEFEROXAMINE [Concomitant]
     Dosage: 1 G, QD
     Route: 058
     Dates: start: 201008
  11. DEFEROXAMINE [Concomitant]
     Dosage: 2 G, QD, 5 DAYS A WEEK
     Dates: start: 20120827, end: 20130211
  12. FOLIC ACID [Concomitant]
     Indication: CARDIAC FAILURE
     Dosage: 5 MG, QD
     Route: 048
  13. DEFERASIROX [Concomitant]
     Dosage: 1000 OR 1500 MG/ DAY
     Dates: start: 20100817, end: 20120822

REACTIONS (7)
  - Restrictive cardiomyopathy [Fatal]
  - Haemochromatosis [Fatal]
  - Atrial fibrillation [Fatal]
  - Dilatation atrial [Fatal]
  - Tricuspid valve incompetence [Fatal]
  - Aortic valve incompetence [Fatal]
  - Mitral valve incompetence [Fatal]
